FAERS Safety Report 4759120-4 (Version None)
Quarter: 2005Q3

REPORT INFORMATION
  Report Type: 
  Country: None (occurrence: None)
  Receive Date: 20050831
  Receipt Date: 20050825
  Transmission Date: 20060218
  Serious: Yes (Death)
  Sender: FDA-Public Use
  Company Number: 2005-130900-NL

PATIENT
  Age: 58 Year
  Sex: Male

DRUGS (5)
  1. ROCURONIUM BROMIDE [Suspect]
     Indication: MUSCLE RELAXANT THERAPY
     Dosage: INTRAVENOUS (NOS)
     Route: 042
     Dates: start: 20050727
  2. LEVOFLOXACIN [Suspect]
     Indication: PROPHYLAXIS
     Dosage: 20 ML ONCE INTRAVENOUS (NOS)
     Route: 042
     Dates: start: 20050727, end: 20050727
  3. PROPOFOL [Concomitant]
  4. ENALAPRIL [Concomitant]
  5. ADCO-RETIC [Concomitant]

REACTIONS (4)
  - ANAPHYLACTIC SHOCK [None]
  - BRONCHOSPASM [None]
  - HYPOTENSION [None]
  - LEUKOCYTOCLASTIC VASCULITIS [None]
